FAERS Safety Report 25120486 (Version 1)
Quarter: 2025Q1

REPORT INFORMATION
  Report Type: Report from Study
  Country: US (occurrence: US)
  Receive Date: 20250325
  Receipt Date: 20250325
  Transmission Date: 20250409
  Serious: Yes (Hospitalization, Other)
  Sender: GILEAD
  Company Number: US-GILEAD-2025-0708036

PATIENT
  Sex: Male

DRUGS (19)
  1. AZTREONAM LYSINE [Suspect]
     Active Substance: AZTREONAM LYSINE
     Indication: Prophylaxis
     Dosage: 75 MG, TID (ONE MONTH ON, ONE MONTH OFF.)
     Route: 055
     Dates: start: 202503
  2. BASAGLAR [Concomitant]
     Active Substance: INSULIN GLARGINE
  3. OMEPRAZOLE [Concomitant]
     Active Substance: OMEPRAZOLE
  4. EVEROLIMUS [Concomitant]
     Active Substance: EVEROLIMUS
  5. FUROSEMIDE [Concomitant]
     Active Substance: FUROSEMIDE
  6. PREDNISONE [Concomitant]
     Active Substance: PREDNISONE
  7. NYSTATIN [Concomitant]
     Active Substance: NYSTATIN
  8. TACROLIMUS [Concomitant]
     Active Substance: TACROLIMUS
  9. METOPROLOL [Concomitant]
     Active Substance: METOPROLOL
  10. ALBUTEROL SULFATE [Concomitant]
     Active Substance: ALBUTEROL SULFATE
  11. CRESEMBA [Concomitant]
     Active Substance: ISAVUCONAZONIUM SULFATE
  12. AZITHROMYCIN [Concomitant]
     Active Substance: AZITHROMYCIN
  13. MAGNESIUM [Concomitant]
     Active Substance: MAGNESIUM
  14. BACTRIM [Concomitant]
     Active Substance: SULFAMETHOXAZOLE\TRIMETHOPRIM
  15. CIPROFLOXACIN [Concomitant]
     Active Substance: CIPROFLOXACIN
  16. ACYCLOVIR [Concomitant]
     Active Substance: ACYCLOVIR
  17. VITAMIN D2 [Concomitant]
     Active Substance: ERGOCALCIFEROL
  18. B12 ACTIVE [Concomitant]
  19. VALACYCLOVIR [Concomitant]
     Active Substance: VALACYCLOVIR HYDROCHLORIDE

REACTIONS (5)
  - Pneumonia [Unknown]
  - Transplant rejection [Unknown]
  - Pruritus [Unknown]
  - Swelling [Unknown]
  - Circumstance or information capable of leading to device use error [Unknown]
